FAERS Safety Report 14077845 (Version 1)
Quarter: 2017Q4

REPORT INFORMATION
  Report Type: Spontaneous
  Country: JP (occurrence: JP)
  Receive Date: 20171012
  Receipt Date: 20171012
  Transmission Date: 20180321
  Serious: Yes (Other)
  Sender: FDA-Public Use
  Company Number: JP-MANKIND-000019

PATIENT
  Age: 77 Year
  Sex: Female

DRUGS (2)
  1. HALOPERIDOL. [Suspect]
     Active Substance: HALOPERIDOL
     Indication: CHOREA
  2. RISPERIDONE. [Suspect]
     Active Substance: RISPERIDONE
     Indication: CHOREA

REACTIONS (1)
  - Drug ineffective [Unknown]
